FAERS Safety Report 16126626 (Version 1)
Quarter: 2019Q1

REPORT INFORMATION
  Report Type: Spontaneous
  Country: US (occurrence: US)
  Receive Date: 20190328
  Receipt Date: 20190328
  Transmission Date: 20190418
  Serious: No
  Sender: FDA-Public Use
  Company Number: US-ASTRAZENECA-2019SE33913

PATIENT

DRUGS (1)
  1. FASLODEX [Suspect]
     Active Substance: FULVESTRANT
     Route: 030

REACTIONS (5)
  - White blood cell count decreased [Unknown]
  - Lacrimation increased [Unknown]
  - Irritability [Unknown]
  - Rhinorrhoea [Unknown]
  - Fatigue [Unknown]
